FAERS Safety Report 24618308 (Version 2)
Quarter: 2025Q2

REPORT INFORMATION
  Report Type: Spontaneous
  Country: US (occurrence: US)
  Receive Date: 20241114
  Receipt Date: 20250604
  Transmission Date: 20250717
  Serious: No
  Sender: HISAMITSU PHARMACEUTICAL CO., INC.
  Company Number: US-HISAMITSU PHARMACEUTICAL CO., INC.-2024-NOV-US000522

PATIENT
  Age: 16 Year
  Sex: Female

DRUGS (5)
  1. SECUADO [Suspect]
     Active Substance: ASENAPINE
     Indication: Oppositional defiant disorder
     Route: 062
  2. SECUADO [Suspect]
     Active Substance: ASENAPINE
     Indication: Attention deficit hyperactivity disorder
  3. SECUADO [Suspect]
     Active Substance: ASENAPINE
     Indication: Disruptive mood dysregulation disorder
  4. SECUADO [Suspect]
     Active Substance: ASENAPINE
     Indication: Off label use
  5. TRILEPTAL [Suspect]
     Active Substance: OXCARBAZEPINE
     Indication: Product used for unknown indication
     Route: 065

REACTIONS (2)
  - Hot flush [Not Recovered/Not Resolved]
  - Off label use [Not Recovered/Not Resolved]

NARRATIVE: CASE EVENT DATE: 20240101
